FAERS Safety Report 7589710-5 (Version None)
Quarter: 2011Q3

REPORT INFORMATION
  Report Type: 
  Country: None (occurrence: None)
  Receive Date: 20110705
  Receipt Date: 20110622
  Transmission Date: 20111222
  Serious: Yes (Hospitalization)
  Sender: FDA-Public Use
  Company Number: US-EISAI INC-E3810-04727-SPO-US

PATIENT
  Sex: Female
  Weight: 68 kg

DRUGS (7)
  1. PRAVASTATIN [Concomitant]
     Dates: start: 20090601
  2. ACIPHEX [Suspect]
     Indication: ULCER
  3. ACIPHEX [Suspect]
     Indication: HERNIA
  4. TOPROL-XL [Concomitant]
     Indication: ARRHYTHMIA
     Dates: start: 20091109
  5. FEXOFENADINE [Concomitant]
     Dates: start: 20090205
  6. ACIPHEX [Suspect]
     Route: 048
     Dates: start: 20091203, end: 20110524
  7. AVAPRO [Concomitant]
     Indication: HYPERTENSION
     Dates: start: 20090601

REACTIONS (3)
  - DIZZINESS [None]
  - LOSS OF CONSCIOUSNESS [None]
  - HAEMOGLOBIN DECREASED [None]
